FAERS Safety Report 13445178 (Version 1)
Quarter: 2017Q2

REPORT INFORMATION
  Report Type: Spontaneous
  Country: FR (occurrence: FR)
  Receive Date: 20170414
  Receipt Date: 20170414
  Transmission Date: 20170830
  Serious: Yes (Hospitalization, Other)
  Sender: FDA-Public Use
  Company Number: FR-GLAXOSMITHKLINE-FR2017GSK053308

PATIENT
  Age: 74 Year
  Sex: Female

DRUGS (11)
  1. RAMIPRIL. [Concomitant]
     Active Substance: RAMIPRIL
  2. KARDEGIC [Concomitant]
     Active Substance: ASPIRIN LYSINE
  3. FRAGMINE [Concomitant]
     Active Substance: DALTEPARIN SODIUM
  4. TAHOR [Concomitant]
     Active Substance: ATORVASTATIN CALCIUM
  5. VOLTARENE [Suspect]
     Active Substance: DICLOFENAC SODIUM
     Indication: INFLUENZA LIKE ILLNESS
     Dosage: UNK
     Route: 048
     Dates: start: 201610, end: 201610
  6. LEVOTHYROX [Concomitant]
     Active Substance: LEVOTHYROXINE
  7. PANTOPRAZOLE [Concomitant]
     Active Substance: PANTOPRAZOLE
  8. HUMALOG [Concomitant]
     Active Substance: INSULIN LISPRO
  9. LASILIX [Concomitant]
     Active Substance: FUROSEMIDE
  10. ZOLOFT [Concomitant]
     Active Substance: SERTRALINE HYDROCHLORIDE
  11. BROMAZEPAN [Concomitant]
     Active Substance: BROMAZEPAM

REACTIONS (1)
  - Nephrotic syndrome [Recovered/Resolved]

NARRATIVE: CASE EVENT DATE: 20161026
